FAERS Safety Report 5167541-3 (Version None)
Quarter: 2006Q4

REPORT INFORMATION
  Report Type: 
  Country: None (occurrence: None)
  Receive Date: 20060830
  Receipt Date: 20060603
  Transmission Date: 20070319
  Serious: Yes (Other)
  Sender: FDA-Public Use
  Company Number: 224004

PATIENT
  Sex: Male

DRUGS (1)
  1. XOLAIR [Suspect]
     Indication: ASTHMA
     Dosage: 225 MG Q2W
     Dates: start: 20051215, end: 20060227

REACTIONS (1)
  - RENAL CELL CARCINOMA STAGE UNSPECIFIED [None]
